FAERS Safety Report 23169076 (Version 2)
Quarter: 2023Q4

REPORT INFORMATION
  Report Type: Report from Study
  Country: NL (occurrence: NL)
  Receive Date: 20231110
  Receipt Date: 20231127
  Transmission Date: 20240110
  Serious: Yes (Hospitalization)
  Sender: FDA-Public Use
  Company Number: NL-ABBVIE-5488472

PATIENT
  Sex: Male

DRUGS (7)
  1. CARBIDOPA\LEVODOPA [Suspect]
     Active Substance: CARBIDOPA\LEVODOPA
     Indication: Parkinson^s disease
     Dosage: MD 0.0 ML; CD 5.0 ML/H; ED 2.0 ML; CND 2.3 ML/H; END 2.0 ML, REMAINS AT 24 HOURS
     Route: 050
     Dates: start: 20230313, end: 20230719
  2. CARBIDOPA\LEVODOPA [Suspect]
     Active Substance: CARBIDOPA\LEVODOPA
     Dosage: REMAINS AT 24 HOURS
     Route: 050
     Dates: start: 20200831, end: 20230313
  3. CARBIDOPA\LEVODOPA [Suspect]
     Active Substance: CARBIDOPA\LEVODOPA
     Dosage: MD 6.3 ML; CD 4.8 ML/H; ED 2.0 ML; CND 2.3 ML/H; END 2.0 ML, REMAINS AT 24 HOURS
     Route: 050
     Dates: start: 20231116
  4. RIVASTIGMINE [Concomitant]
     Active Substance: RIVASTIGMINE
     Indication: Amnesia
  5. TAMSULOSIN [Concomitant]
     Active Substance: TAMSULOSIN
     Indication: Bladder disorder
     Dates: start: 20160701
  6. BENSERAZIDE\LEVODOPA [Concomitant]
     Active Substance: BENSERAZIDE\LEVODOPA
     Indication: Product used for unknown indication
     Dosage: 100/25; 2 AT NIGHT
     Dates: start: 20200901
  7. BENSERAZIDE HYDROCHLORIDE\LEVODOPA [Concomitant]
     Active Substance: BENSERAZIDE HYDROCHLORIDE\LEVODOPA
     Indication: Parkinson^s disease
     Dosage: TIME INTERVAL: 0.16666667 DAYS: FORM STRENGTH: 125 MILLIGRAM
     Dates: start: 20180419

REACTIONS (6)
  - Cerebral haemorrhage [Not Recovered/Not Resolved]
  - Restlessness [Not Recovered/Not Resolved]
  - Hallucination [Not Recovered/Not Resolved]
  - Abnormal behaviour [Not Recovered/Not Resolved]
  - Overdose [Recovering/Resolving]
  - Anger [Not Recovered/Not Resolved]

NARRATIVE: CASE EVENT DATE: 20230101
